FAERS Safety Report 10267621 (Version 1)
Quarter: 2014Q2

REPORT INFORMATION
  Report Type: Spontaneous
  Country: US (occurrence: US)
  Receive Date: 20140630
  Receipt Date: 20140630
  Transmission Date: 20141212
  Serious: No
  Sender: FDA-Public Use
  Company Number: US-JNJFOC-20140613891

PATIENT
  Sex: Female

DRUGS (5)
  1. INVEGA SUSTENNA [Suspect]
     Indication: PRODUCT USED FOR UNKNOWN INDICATION
     Route: 030
  2. TRAZODONE [Concomitant]
     Route: 065
  3. DEPAKOTE [Concomitant]
     Route: 065
  4. CELEXA [Concomitant]
     Route: 065
  5. SAPHRIS [Concomitant]
     Route: 065

REACTIONS (4)
  - Inappropriate schedule of drug administration [Unknown]
  - Delusion [Unknown]
  - Hallucination [Unknown]
  - Drug ineffective [Unknown]
